FAERS Safety Report 6270454-7 (Version None)
Quarter: 2009Q3

REPORT INFORMATION
  Report Type: 
  Country: None (occurrence: None)
  Receive Date: 20090716
  Receipt Date: 20090709
  Transmission Date: 20100115
  Serious: Yes (Death)
  Sender: FDA-Public Use
  Company Number: AU-AVENTIS-200916799GDDC

PATIENT
  Age: 51 Year
  Sex: Male

DRUGS (4)
  1. ARAVA [Suspect]
  2. VOLTAREN [Suspect]
  3. NUROFEN [Suspect]
     Dosage: DOSE: NOT  INDICATED
  4. LIPITOR [Concomitant]
     Dosage: DOSE: NOT INDICATED

REACTIONS (1)
  - LARGE INTESTINAL HAEMORRHAGE [None]
